FAERS Safety Report 7295359-4 (Version None)
Quarter: 2011Q1

REPORT INFORMATION
  Report Type: 
  Country: None (occurrence: None)
  Receive Date: 20110216
  Receipt Date: 20110207
  Transmission Date: 20110831
  Serious: Yes (Life-Threatening, Hospitalization)
  Sender: FDA-Public Use
  Company Number: JP-AMGEN-JPNCT2011002370

PATIENT
  Age: 59 Year
  Sex: Male
  Weight: 72 kg

DRUGS (8)
  1. TOPOTECAN [Concomitant]
     Indication: COLORECTAL CANCER
     Dosage: 277.5 MG, Q2WK
     Route: 041
     Dates: start: 20101222, end: 20101222
  2. LEVOFOLINATE [Concomitant]
     Indication: COLORECTAL CANCER
     Dosage: 370 MG, Q2WK
     Route: 041
     Dates: start: 20101222, end: 20101222
  3. FLUOROURACIL [Concomitant]
     Route: 041
     Dates: start: 20101222, end: 20101222
  4. DEXART [Concomitant]
     Indication: PROPHYLAXIS
     Route: 042
     Dates: start: 20101222, end: 20101222
  5. PANITUMUMAB [Suspect]
     Indication: COLORECTAL CANCER
     Dosage: UNK, Q2WK
     Route: 041
     Dates: start: 20101222, end: 20101222
  6. GRANISETRON HCL [Concomitant]
     Indication: PROPHYLAXIS
     Route: 042
     Dates: start: 20101222, end: 20101222
  7. FLUOROURACIL [Concomitant]
     Indication: COLORECTAL CANCER
     Dosage: UNK UNK, Q2WK
     Route: 042
     Dates: start: 20101222, end: 20101222
  8. FLUOROURACIL [Concomitant]
     Route: 040
     Dates: start: 20101222, end: 20101222

REACTIONS (1)
  - INTERSTITIAL LUNG DISEASE [None]
